FAERS Safety Report 6453902-9 (Version None)
Quarter: 2009Q4

REPORT INFORMATION
  Report Type: 
  Country: None (occurrence: None)
  Receive Date: 20091117
  Receipt Date: 20091105
  Transmission Date: 20100525
  Serious: Yes (Other)
  Sender: FDA-Public Use
  Company Number: 230322J09USA

PATIENT
  Age: 51 Year
  Sex: Female
  Weight: 83 kg

DRUGS (10)
  1. REBIF [Suspect]
     Indication: MULTIPLE SCLEROSIS
     Dosage: 44 MCG, 3 IN 1 WEEKS, SUBCUTANEOUS
     Route: 058
     Dates: start: 20060317
  2. RISPERDAL [Suspect]
     Dosage: 2 MG, 2 IN 1 DAYS
     Dates: start: 20080305
  3. GABAPENTIN [Concomitant]
  4. ALBUTEROL [Concomitant]
  5. SIMVASTATIN [Concomitant]
  6. RANITIDINE (RANITIDINE /00550801/) [Concomitant]
  7. OXYBUTYNIN (OXYBUTYNIN /00538901/) [Concomitant]
  8. OMEPRAZOLE DR (OMEPRAZOLE) [Concomitant]
  9. MAXAIR [Concomitant]
  10. LORAZEPAM [Concomitant]

REACTIONS (1)
  - TYPE 2 DIABETES MELLITUS [None]
